FAERS Safety Report 4598697-9 (Version None)
Quarter: 2005Q1

REPORT INFORMATION
  Report Type: 
  Country: None (occurrence: None)
  Receive Date: 20050301
  Receipt Date: 20050301
  Transmission Date: 20050727
  Serious: Yes (Other)
  Sender: FDA-Public Use
  Company Number: None

PATIENT
  Age: 80 Year
  Sex: Male
  Weight: 55.7924 kg

DRUGS (6)
  1. IRESSA [Suspect]
     Indication: METASTATIC RENAL CELL CARCINOMA
     Dosage: 250 MG ORAL
     Route: 048
     Dates: start: 20041209, end: 20050219
  2. PEG-INTRON [Suspect]
     Indication: METASTATIC RENAL CELL CARCINOMA
     Dosage: 6.0 UG/KG SUBCUTANEOUS
     Route: 058
     Dates: start: 20041209, end: 20050113
  3. PLENDIL [Concomitant]
  4. NEURONTON [Concomitant]
  5. ASPIRIN [Concomitant]
  6. ATIVAN [Concomitant]

REACTIONS (8)
  - ANOREXIA [None]
  - ASPARTATE AMINOTRANSFERASE INCREASED [None]
  - HYPERGLYCAEMIA [None]
  - HYPOCALCAEMIA [None]
  - MALIGNANT NEOPLASM PROGRESSION [None]
  - METASTASES TO BONE [None]
  - NAUSEA [None]
  - WEIGHT DECREASED [None]
